FAERS Safety Report 12348838 (Version 1)
Quarter: 2016Q2

REPORT INFORMATION
  Report Type: Spontaneous
  Country: JP (occurrence: JP)
  Receive Date: 20160509
  Receipt Date: 20160509
  Transmission Date: 20160815
  Serious: Yes (Other)
  Sender: FDA-Public Use
  Company Number: JP-HQ SPECIALTY-JP-2016INT000263

PATIENT
  Age: 58 Year
  Sex: Female

DRUGS (6)
  1. PACLITAXEL. [Suspect]
     Active Substance: PACLITAXEL
     Indication: METASTASES TO BONE
  2. TRASTUZUMAB [Suspect]
     Active Substance: TRASTUZUMAB
     Indication: BREAST CANCER STAGE IV
     Dosage: UNK
  3. TRASTUZUMAB [Suspect]
     Active Substance: TRASTUZUMAB
     Indication: METASTASES TO BONE
  4. PACLITAXEL. [Suspect]
     Active Substance: PACLITAXEL
     Indication: METASTASES TO LIVER
  5. TRASTUZUMAB [Suspect]
     Active Substance: TRASTUZUMAB
     Indication: METASTASES TO LIVER
  6. PACLITAXEL. [Suspect]
     Active Substance: PACLITAXEL
     Indication: BREAST CANCER STAGE IV
     Dosage: 180 MG/BODY WEIGHT, BIWEEKLY

REACTIONS (1)
  - Metastases to liver [Recovered/Resolved]
